FAERS Safety Report 13549643 (Version 5)
Quarter: 2017Q3

REPORT INFORMATION
  Report Type: Spontaneous
  Country: KR (occurrence: KR)
  Receive Date: 20170516
  Receipt Date: 20170824
  Transmission Date: 20171127
  Serious: No
  Sender: FDA-Public Use
  Company Number: KR-009507513-1705KOR006233

PATIENT
  Age: 60 Year
  Sex: Female
  Weight: 52.6 kg

DRUGS (50)
  1. EMEND (FOSAPREPITANT DIMEGLUMINE) [Suspect]
     Active Substance: FOSAPREPITANT DIMEGLUMINE
     Dosage: 150 MG, ONCE
     Route: 042
     Dates: start: 20161201, end: 20161201
  2. ENDOXAN [Concomitant]
     Active Substance: CYCLOPHOSPHAMIDE
     Dosage: 1115 MG, ONCE
     Route: 042
     Dates: start: 20161224, end: 20161224
  3. VINCRISTINE SULFATE. [Concomitant]
     Active Substance: VINCRISTINE SULFATE
     Dosage: 2 MG, ONCE
     Route: 042
     Dates: start: 20170202, end: 20170202
  4. SOLONDO [Concomitant]
     Active Substance: PREDNISOLONE
     Dosage: 20 TABLETS, QD
     Route: 048
     Dates: start: 20170111, end: 20170115
  5. SKYCELLFLU QUADRIVALENT [Concomitant]
     Indication: ANTIVIRAL PROPHYLAXIS
     Dosage: 0.5 ML, ONCE
     Route: 058
     Dates: start: 20161122, end: 20161122
  6. ENDOXAN [Concomitant]
     Active Substance: CYCLOPHOSPHAMIDE
     Dosage: 1115 MG, ONCE
     Route: 042
     Dates: start: 20170111, end: 20170111
  7. MABTHERA [Concomitant]
     Active Substance: RITUXIMAB
     Dosage: 600 MG, ONCE
     Route: 042
     Dates: start: 20161201, end: 20161201
  8. VINCRISTINE SULFATE. [Concomitant]
     Active Substance: VINCRISTINE SULFATE
     Indication: CHEMOTHERAPY
     Dosage: 2 MG, ONCE
     Route: 042
     Dates: start: 20161108, end: 20161108
  9. SOLONDO [Concomitant]
     Active Substance: PREDNISOLONE
     Dosage: 20 TABLETS, QD
     Route: 048
     Dates: start: 20161224, end: 20161228
  10. ALOXI [Concomitant]
     Active Substance: PALONOSETRON HYDROCHLORIDE
     Dosage: 0.25 MG, QD
     Route: 042
     Dates: start: 20170111, end: 20170111
  11. MEGACE [Concomitant]
     Active Substance: MEGESTROL ACETATE
     Indication: PROPHYLAXIS
     Dosage: 5 ML, QD
     Route: 048
     Dates: start: 20161104, end: 20170204
  12. MAGO [Concomitant]
     Indication: CONSTIPATION PROPHYLAXIS
     Dosage: 1 CAPSULE, QD
     Route: 048
     Dates: start: 20161110, end: 20161120
  13. ENDOXAN [Concomitant]
     Active Substance: CYCLOPHOSPHAMIDE
     Dosage: 1115 MG, ONCE
     Route: 042
     Dates: start: 20170223, end: 20170223
  14. MABTHERA [Concomitant]
     Active Substance: RITUXIMAB
     Dosage: 600 MG, ONCE
     Route: 042
     Dates: start: 20170202, end: 20170202
  15. SOLONDO [Concomitant]
     Active Substance: PREDNISOLONE
     Indication: ANTIEMETIC SUPPORTIVE CARE
     Dosage: 20 TABLETS, QD
     Route: 048
     Dates: start: 20161108, end: 20161112
  16. SOLONDO [Concomitant]
     Active Substance: PREDNISOLONE
     Dosage: 20 TABLETS, QD
     Route: 048
     Dates: start: 20170202, end: 20170206
  17. ALOXI [Concomitant]
     Active Substance: PALONOSETRON HYDROCHLORIDE
     Indication: ANTIEMETIC SUPPORTIVE CARE
     Dosage: 0.25 MG, QD
     Route: 042
     Dates: start: 20161108, end: 20161108
  18. ALOXI [Concomitant]
     Active Substance: PALONOSETRON HYDROCHLORIDE
     Dosage: 0.25 MG, QD
     Route: 042
     Dates: start: 20170223, end: 20170223
  19. AZEPTIN [Concomitant]
     Active Substance: AZELASTINE HYDROCHLORIDE
     Indication: PERIVASCULAR DERMATITIS
     Dosage: 1 TABLET, QD
     Route: 048
     Dates: start: 20161122, end: 20161129
  20. ADRIAMYCIN [Concomitant]
     Active Substance: DOXORUBICIN HYDROCHLORIDE
     Dosage: 74.5 MG, ONCE
     Route: 042
     Dates: start: 20161224, end: 20161224
  21. MABTHERA [Concomitant]
     Active Substance: RITUXIMAB
     Dosage: 600 MG, ONCE
     Route: 042
     Dates: start: 20170111, end: 20170111
  22. ALOXI [Concomitant]
     Active Substance: PALONOSETRON HYDROCHLORIDE
     Dosage: 0.25 MG, QD
     Route: 042
     Dates: start: 20161224, end: 20161224
  23. MEDILAC-DS [Concomitant]
     Indication: PROPHYLAXIS AGAINST DIARRHOEA
     Dosage: 1 CAPSULE, TID
     Route: 048
     Dates: start: 20161215
  24. PANTOLINE TABLETS [Concomitant]
     Indication: CHRONIC GASTRITIS
     Dosage: 1 TABLET, QD
     Route: 048
     Dates: start: 20161108
  25. EMEND (FOSAPREPITANT DIMEGLUMINE) [Suspect]
     Active Substance: FOSAPREPITANT DIMEGLUMINE
     Dosage: 150 MG, ONCE
     Route: 042
     Dates: start: 20161224, end: 20161224
  26. EMEND (FOSAPREPITANT DIMEGLUMINE) [Suspect]
     Active Substance: FOSAPREPITANT DIMEGLUMINE
     Dosage: 150 MG, ONCE
     Route: 042
     Dates: start: 20170223, end: 20170223
  27. ENDOXAN [Concomitant]
     Active Substance: CYCLOPHOSPHAMIDE
     Dosage: 1115 MG, ONCE
     Route: 042
     Dates: start: 20161201, end: 20161201
  28. ENDOXAN [Concomitant]
     Active Substance: CYCLOPHOSPHAMIDE
     Dosage: 1115 MG, ONCE
     Route: 042
     Dates: start: 20170202, end: 20170202
  29. ALOXI [Concomitant]
     Active Substance: PALONOSETRON HYDROCHLORIDE
     Dosage: 0.25 MG, QD
     Route: 042
     Dates: start: 20161201, end: 20161201
  30. ULCERLMIN [Concomitant]
     Active Substance: SUCRALFATE
     Indication: CHRONIC GASTRITIS
     Dosage: 15 ML, 4 TIMES A DAY
     Route: 048
     Dates: start: 20161109
  31. EMEND (FOSAPREPITANT DIMEGLUMINE) [Suspect]
     Active Substance: FOSAPREPITANT DIMEGLUMINE
     Dosage: 150 MG, ONCE
     Route: 042
     Dates: start: 20170202, end: 20170202
  32. MABTHERA [Concomitant]
     Active Substance: RITUXIMAB
     Indication: CHEMOTHERAPY
     Dosage: 600 MG, ONCE
     Route: 042
     Dates: start: 20161108, end: 20161108
  33. MABTHERA [Concomitant]
     Active Substance: RITUXIMAB
     Dosage: 600 MG, ONCE
     Route: 042
     Dates: start: 20170223, end: 20170223
  34. VINCRISTINE SULFATE. [Concomitant]
     Active Substance: VINCRISTINE SULFATE
     Dosage: 2 MG, ONCE
     Route: 042
     Dates: start: 20161224, end: 20161224
  35. VINCRISTINE SULFATE. [Concomitant]
     Active Substance: VINCRISTINE SULFATE
     Dosage: 2 MG, ONCE
     Route: 042
     Dates: start: 20170111, end: 20170111
  36. SOLONDO [Concomitant]
     Active Substance: PREDNISOLONE
     Dosage: 20 TABLETS, QD
     Route: 048
     Dates: start: 20161201, end: 20161205
  37. EMEND (FOSAPREPITANT DIMEGLUMINE) [Suspect]
     Active Substance: FOSAPREPITANT DIMEGLUMINE
     Indication: PROPHYLAXIS OF NAUSEA AND VOMITING
     Dosage: 150 MG, ONCE
     Route: 042
     Dates: start: 20161108, end: 20161108
  38. EMEND (FOSAPREPITANT DIMEGLUMINE) [Suspect]
     Active Substance: FOSAPREPITANT DIMEGLUMINE
     Dosage: 150 MG, ONCE
     Route: 042
     Dates: start: 20170111, end: 20170111
  39. ADRIAMYCIN [Concomitant]
     Active Substance: DOXORUBICIN HYDROCHLORIDE
     Indication: CHEMOTHERAPY
     Dosage: 74.5 MG, ONCE
     Route: 042
     Dates: start: 20161108, end: 20161108
  40. ADRIAMYCIN [Concomitant]
     Active Substance: DOXORUBICIN HYDROCHLORIDE
     Dosage: 74.5 MG, ONCE
     Route: 042
     Dates: start: 20161201, end: 20161201
  41. ADRIAMYCIN [Concomitant]
     Active Substance: DOXORUBICIN HYDROCHLORIDE
     Dosage: 74.5 MG, ONCE
     Route: 042
     Dates: start: 20170111, end: 20170111
  42. ENDOXAN [Concomitant]
     Active Substance: CYCLOPHOSPHAMIDE
     Indication: CHEMOTHERAPY
     Dosage: 1115 MG, ONCE
     Route: 042
     Dates: start: 20161108, end: 20161108
  43. MABTHERA [Concomitant]
     Active Substance: RITUXIMAB
     Dosage: 600 MG, ONCE
     Route: 042
     Dates: start: 20161224, end: 20161224
  44. VINCRISTINE SULFATE. [Concomitant]
     Active Substance: VINCRISTINE SULFATE
     Dosage: 2 MG, ONCE
     Route: 042
     Dates: start: 20161201, end: 20161201
  45. VINCRISTINE SULFATE. [Concomitant]
     Active Substance: VINCRISTINE SULFATE
     Dosage: 2 MG, ONCE
     Route: 042
     Dates: start: 20170223, end: 20170223
  46. SOLONDO [Concomitant]
     Active Substance: PREDNISOLONE
     Dosage: 20 TABLETS, QD
     Route: 048
     Dates: start: 20170223, end: 20170227
  47. ALOXI [Concomitant]
     Active Substance: PALONOSETRON HYDROCHLORIDE
     Dosage: 0.25 MG, QD
     Route: 042
     Dates: start: 20170202, end: 20170202
  48. ADRIAMYCIN [Concomitant]
     Active Substance: DOXORUBICIN HYDROCHLORIDE
     Dosage: 74.5 MG, ONCE
     Route: 042
     Dates: start: 20170202, end: 20170202
  49. ADRIAMYCIN [Concomitant]
     Active Substance: DOXORUBICIN HYDROCHLORIDE
     Dosage: 74.5 MG, ONCE
     Route: 042
     Dates: start: 20170223, end: 20170223
  50. PREVNAR 13 [Concomitant]
     Active Substance: PNEUMOCOCCAL 13-VALENT CONJUGATE VACCINE
     Indication: PROPHYLAXIS
     Dosage: 62.8 MG, ONCE
     Route: 058
     Dates: start: 20161122, end: 20161122

REACTIONS (3)
  - Dysphonia [Recovered/Resolved]
  - Nasopharyngitis [Recovered/Resolved]
  - Nausea [Recovered/Resolved]

NARRATIVE: CASE EVENT DATE: 20161202
